FAERS Safety Report 5748967-3 (Version None)
Quarter: 2008Q2

REPORT INFORMATION
  Report Type: 
  Country: None (occurrence: None)
  Receive Date: 20080527
  Receipt Date: 20080519
  Transmission Date: 20081010
  Serious: Yes (Hospitalization)
  Sender: FDA-Public Use
  Company Number: FR-WYE-G01555408

PATIENT
  Sex: Male
  Weight: 9.5 kg

DRUGS (2)
  1. ADVIL [Suspect]
     Dosage: UNKNOWN
     Route: 048
     Dates: start: 20080310
  2. DOLIPRANE [Concomitant]
     Dosage: UNKNOWN
     Route: 048
     Dates: start: 20080310

REACTIONS (15)
  - AGITATION [None]
  - ALANINE AMINOTRANSFERASE INCREASED [None]
  - CRYING [None]
  - DEHYDRATION [None]
  - DEPRESSED LEVEL OF CONSCIOUSNESS [None]
  - DIARRHOEA [None]
  - HEART RATE INCREASED [None]
  - INFLAMMATION [None]
  - KAWASAKI'S DISEASE [None]
  - LYMPHADENOPATHY [None]
  - OXYGEN SATURATION DECREASED [None]
  - PO2 DECREASED [None]
  - RASH MORBILLIFORM [None]
  - RENAL FAILURE ACUTE [None]
  - RESPIRATION ABNORMAL [None]
